FAERS Safety Report 6218314-1 (Version None)
Quarter: 2009Q2

REPORT INFORMATION
  Report Type: 
  Country: None (occurrence: None)
  Receive Date: 20090608
  Receipt Date: 20090601
  Transmission Date: 20091009
  Serious: Yes (Other)
  Sender: FDA-Public Use
  Company Number: US-ASTRAZENECA-2009UW13842

PATIENT
  Sex: Female
  Weight: 81.6 kg

DRUGS (8)
  1. NEXIUM [Suspect]
     Route: 048
  2. PLAVIX [Concomitant]
  3. LIPITOR [Concomitant]
  4. MUCINEX [Concomitant]
  5. AVALIDE [Concomitant]
  6. LEXAPRO [Concomitant]
  7. NORVASC [Concomitant]
  8. XANAX [Concomitant]

REACTIONS (1)
  - VASCULAR GRAFT [None]
